FAERS Safety Report 5507653-5 (Version None)
Quarter: 2007Q4

REPORT INFORMATION
  Report Type: 
  Country: None (occurrence: None)
  Receive Date: 20071106
  Receipt Date: 20071026
  Transmission Date: 20080405
  Serious: Yes (Hospitalization)
  Sender: FDA-Public Use
  Company Number: US-JNJFOC-20071007513

PATIENT
  Sex: Female
  Weight: 45.36 kg

DRUGS (6)
  1. FENTANYL TRANSDERMAL SYSTEM [Suspect]
     Indication: PAIN
     Route: 062
  2. FENTANYL TRANSDERMAL SYSTEM [Suspect]
     Indication: PAIN
     Route: 062
  3. DURAGESIC-100 [Suspect]
     Indication: PAIN
     Route: 062
  4. PREMPRO [Concomitant]
     Indication: HORMONE REPLACEMENT THERAPY
     Route: 048
  5. PRILOSEC [Concomitant]
     Indication: GASTRIC DISORDER
     Route: 048
  6. VICODIN [Concomitant]
     Indication: BREAKTHROUGH PAIN
     Route: 048

REACTIONS (6)
  - BACK DISORDER [None]
  - BONE FRAGMENTATION [None]
  - INAPPROPRIATE SCHEDULE OF DRUG ADMINISTRATION [None]
  - INTERVERTEBRAL DISC DISORDER [None]
  - PHARMACEUTICAL PRODUCT COMPLAINT [None]
  - THERAPEUTIC RESPONSE DECREASED [None]
